FAERS Safety Report 25508578 (Version 4)
Quarter: 2025Q4

REPORT INFORMATION
  Report Type: Spontaneous
  Country: US (occurrence: US)
  Receive Date: 20250703
  Receipt Date: 20251112
  Transmission Date: 20260117
  Serious: Yes (Hospitalization, Other)
  Sender: UNITED THERAPEUTICS
  Company Number: US-UNITED THERAPEUTICS-UNT-2025-022022

PATIENT
  Age: 71 Year
  Sex: Male

DRUGS (5)
  1. TYVASO [Suspect]
     Active Substance: TREPROSTINIL
     Indication: Pulmonary arterial hypertension
     Dosage: 18 ?G, QID
     Dates: start: 202412, end: 202412
  2. TYVASO [Suspect]
     Active Substance: TREPROSTINIL
     Indication: Hypersensitivity pneumonitis
     Dosage: 36 ?G, QID
     Dates: start: 202412
  3. TYVASO [Suspect]
     Active Substance: TREPROSTINIL
     Dosage: 72 ?G, QID
  4. TYVASO [Suspect]
     Active Substance: TREPROSTINIL
     Dosage: 54 ?G (9 BREATHS) IN MORNING, 72 ?G (12 BREATHS) REMAINING 3 DOSES OF THE DAY, QID
  5. TYVASO [Suspect]
     Active Substance: TREPROSTINIL
     Dosage: UNK

REACTIONS (9)
  - Pneumonia [Recovering/Resolving]
  - Hepatic infection [Unknown]
  - Hypotension [Recovered/Resolved]
  - Cough [Unknown]
  - Haemoptysis [Unknown]
  - Throat tightness [Unknown]
  - Productive cough [Unknown]
  - Fluid retention [Unknown]
  - Pulmonary function test decreased [Unknown]

NARRATIVE: CASE EVENT DATE: 20241201
